FAERS Safety Report 9688804 (Version 1)
Quarter: 2013Q4

REPORT INFORMATION
  Report Type: Spontaneous
  Country: US (occurrence: US)
  Receive Date: 20131114
  Receipt Date: 20131114
  Transmission Date: 20140711
  Serious: Yes (Hospitalization)
  Sender: FDA-Public Use
  Company Number: US-BAYER-2013-138155

PATIENT
  Age: 34 Year
  Sex: Female

DRUGS (6)
  1. YASMIN [Suspect]
  2. OXYCODONE W/PARACETAMOL [Concomitant]
     Indication: PAIN
     Dosage: 5-325 MG EVERY 4 HOURS AS NEEDED
     Route: 048
  3. CEPHALEXIN [Concomitant]
     Dosage: 500 MG, UNK
     Route: 048
  4. ROCEPHIN [Concomitant]
  5. OMNICEF [Concomitant]
  6. VICODIN [Concomitant]

REACTIONS (2)
  - Pulmonary embolism [None]
  - Deep vein thrombosis [None]
